FAERS Safety Report 7641175-0 (Version None)
Quarter: 2011Q3

REPORT INFORMATION
  Report Type: 
  Country: None (occurrence: None)
  Receive Date: 20110728
  Receipt Date: 20110715
  Transmission Date: 20111222
  Serious: Yes (Hospitalization, Other)
  Sender: FDA-Public Use
  Company Number: PHHY2011US33417

PATIENT
  Sex: Female
  Weight: 19.3 kg

DRUGS (2)
  1. NEUPOGEN [Concomitant]
     Indication: NEUTROPENIA
     Dosage: 0.33 ML ON MONDAY, WEDNESDAY AND FRIDAY
     Route: 042
  2. EXJADE [Suspect]
     Dosage: 500 MG, QD
     Route: 048

REACTIONS (7)
  - BLOOD POTASSIUM DECREASED [None]
  - RETCHING [None]
  - ABDOMINAL PAIN [None]
  - ILEUS [None]
  - GASTROINTESTINAL DISORDER [None]
  - BLOOD UREA INCREASED [None]
  - NAUSEA [None]
